FAERS Safety Report 6753140-6 (Version None)
Quarter: 2010Q2

REPORT INFORMATION
  Report Type: 
  Country: None (occurrence: None)
  Receive Date: 20100603
  Receipt Date: 20100521
  Transmission Date: 20101027
  Serious: Yes (Hospitalization)
  Sender: FDA-Public Use
  Company Number: US-MYLANLABS-2010S1008637

PATIENT
  Age: 35 Year
  Sex: Male

DRUGS (6)
  1. CLOZAPINE [Suspect]
     Indication: SCHIZOPHRENIA
     Route: 048
     Dates: end: 20100512
  2. CLOZAPINE [Suspect]
     Route: 048
     Dates: start: 20100513, end: 20100513
  3. CLOZAPINE [Suspect]
     Route: 048
     Dates: start: 20100514, end: 20100514
  4. LORAZEPAM [Concomitant]
  5. DEPAKOTE [Concomitant]
  6. LISINOPRIL [Concomitant]

REACTIONS (3)
  - CARDIOMYOPATHY [None]
  - CARDITIS [None]
  - GRANULOCYTOPENIA [None]
